FAERS Safety Report 8391916-2 (Version None)
Quarter: 2012Q2

REPORT INFORMATION
  Report Type: 
  Country: None (occurrence: None)
  Receive Date: 20120529
  Receipt Date: 20120406
  Transmission Date: 20120825
  Serious: Yes (Hospitalization)
  Sender: FDA-Public Use
  Company Number: JP-GLAXOSMITHKLINE-B0794261A

PATIENT
  Sex: Female

DRUGS (35)
  1. RISPERIDONE [Concomitant]
     Route: 048
     Dates: start: 20080501, end: 20090101
  2. RISPERIDONE [Concomitant]
     Route: 048
     Dates: start: 20110401, end: 20120201
  3. RISPERIDONE [Concomitant]
     Indication: RESTLESSNESS
     Dosage: 8MG PER DAY
     Route: 048
     Dates: start: 20120215, end: 20120314
  4. ZYPREXA [Concomitant]
     Route: 048
     Dates: start: 20100601, end: 20101201
  5. UNKNOWN [Concomitant]
     Route: 048
     Dates: start: 20080401, end: 20100601
  6. LAMICTAL [Suspect]
     Indication: BIPOLAR DISORDER
     Dosage: 25MG PER DAY
     Route: 048
     Dates: start: 20120215, end: 20120229
  7. LEVOMEPROMAZIN [Concomitant]
     Route: 048
     Dates: start: 20111201, end: 20120201
  8. FLUOROMETHOLONE [Concomitant]
     Dosage: 5ML PER DAY
     Route: 031
     Dates: start: 20120213, end: 20120213
  9. UNKNOWN [Concomitant]
     Route: 048
     Dates: start: 20111201, end: 20120201
  10. SODIUM PICOSULFATE [Concomitant]
  11. SEROQUEL [Concomitant]
     Indication: RESTLESSNESS
     Dosage: 300MG PER DAY
     Route: 048
     Dates: start: 20120215, end: 20120328
  12. LEVOMEPROMAZIN [Concomitant]
     Route: 048
     Dates: start: 20080401, end: 20100601
  13. DEPAKENE [Concomitant]
     Indication: RESTLESSNESS
     Dosage: 600MG PER DAY
     Route: 048
     Dates: start: 20120215, end: 20120326
  14. NEULEPTIL [Concomitant]
     Indication: INSOMNIA
     Dosage: 3IUAX PER DAY
     Route: 048
     Dates: start: 20120215, end: 20120328
  15. UNKNOWN [Concomitant]
     Route: 048
     Dates: start: 20110901, end: 20111001
  16. UNKNOWN [Concomitant]
     Indication: INSOMNIA
     Dosage: 2IUAX PER DAY
     Route: 048
     Dates: start: 20120215, end: 20120328
  17. BETAMETHASONE VALERATE + GENTAMICIN SULFATE [Concomitant]
  18. UNKNOWN DRUG [Concomitant]
     Dates: start: 20120329, end: 20120409
  19. LAMICTAL [Suspect]
     Dosage: 50MG PER DAY
     Route: 048
     Dates: start: 20120301, end: 20120307
  20. ZYPREXA [Concomitant]
     Route: 048
     Dates: start: 20111201, end: 20120201
  21. LEVOMEPROMAZIN [Concomitant]
     Indication: RESTLESSNESS
     Dosage: 50MG PER DAY
     Route: 048
     Dates: start: 20120215, end: 20120328
  22. VALPROIC ACID [Concomitant]
     Route: 048
     Dates: start: 20051201
  23. NEULEPTIL [Concomitant]
     Route: 048
     Dates: start: 20111001, end: 20120201
  24. PREDNISOLONE [Concomitant]
     Dosage: 3IUAX PER DAY
     Dates: start: 20120326, end: 20120326
  25. CETIRIZINE HYDROCHLORIDE [Concomitant]
     Dosage: 10MG PER DAY
     Dates: start: 20120329, end: 20120513
  26. BETAMETHASONE DIPROPIONATE [Concomitant]
  27. SEROQUEL [Concomitant]
     Route: 048
     Dates: start: 20100601, end: 20120201
  28. LEVOMEPROMAZIN [Concomitant]
     Route: 048
     Dates: start: 20110201, end: 20111001
  29. NEULEPTIL [Concomitant]
     Route: 048
     Dates: start: 20080401, end: 20100601
  30. UNKNOWN [Concomitant]
     Route: 048
     Dates: start: 20101201, end: 20110201
  31. ACETAMINOPHEN [Concomitant]
  32. FAMOTIDINE [Concomitant]
     Dosage: 20MG PER DAY
     Dates: start: 20120329, end: 20120513
  33. LAMICTAL [Suspect]
     Dosage: 100MG PER DAY
     Route: 048
     Dates: start: 20120308, end: 20120314
  34. LAMICTAL [Suspect]
     Dosage: 200MG PER DAY
     Route: 048
     Dates: start: 20120315, end: 20120318
  35. ZYPREXA [Concomitant]
     Indication: RESTLESSNESS
     Dosage: 20MG PER DAY
     Route: 048
     Dates: start: 20120215, end: 20120328

REACTIONS (12)
  - STEVENS-JOHNSON SYNDROME [None]
  - VULVAL DISORDER [None]
  - ERYTHEMA [None]
  - ERYTHEMA OF EYELID [None]
  - PYREXIA [None]
  - LYMPHOCYTE PERCENTAGE DECREASED [None]
  - C-REACTIVE PROTEIN INCREASED [None]
  - OCULAR HYPERAEMIA [None]
  - EOSINOPHIL PERCENTAGE DECREASED [None]
  - NEUTROPHIL PERCENTAGE INCREASED [None]
  - MONOCYTE PERCENTAGE INCREASED [None]
  - GENERALISED ERYTHEMA [None]
